FAERS Safety Report 8956571 (Version 1)
Quarter: 2012Q4

REPORT INFORMATION
  Report Type: Report from Study
  Country: BR (occurrence: BR)
  Receive Date: 20121210
  Receipt Date: 20121210
  Transmission Date: 20130627
  Serious: Yes (Death, Hospitalization)
  Sender: FDA-Public Use
  Company Number: BR-SANOFI-AVENTIS-2012SA089296

PATIENT
  Age: 54 Year
  Sex: Female
  Weight: 64 kg

DRUGS (4)
  1. DOCETAXEL [Suspect]
     Indication: DRUG USE FOR UNKNOWN INDICATION
     Dosage: dose 15 ng/kg
     Route: 042
     Dates: start: 20070201, end: 20070522
  2. BEVACIZUMAB [Suspect]
     Indication: METASTATIC BREAST CANCER
     Dosage: dose 15 mg/kg
strength: 25 mg/ml
     Route: 042
     Dates: start: 20070201, end: 20070719
  3. VINORELBINE TARTRATE [Suspect]
     Indication: DRUG USE FOR UNKNOWN INDICATION
     Route: 042
     Dates: start: 20070621, end: 20070719
  4. ENALAPRIL [Concomitant]
     Dates: start: 20050329

REACTIONS (1)
  - Hepatic failure [Fatal]
